FAERS Safety Report 10570167 (Version 1)
Quarter: 2014Q4

REPORT INFORMATION
  Report Type: Spontaneous
  Country: US (occurrence: None)
  Receive Date: 20141106
  Receipt Date: 20141106
  Transmission Date: 20150529
  Serious: Yes (Disabling)
  Sender: FDA-Public Use
  Company Number: None

PATIENT
  Age: 19 Year
  Sex: Male
  Weight: 72 kg

DRUGS (1)
  1. SILDENAFIL CITRATE. [Suspect]
     Active Substance: SILDENAFIL CITRATE
     Indication: DRUG INEFFECTIVE
     Dosage: 1 PILL 30 MIN BEFORE SEX
     Route: 048
     Dates: start: 20141102

REACTIONS (2)
  - Headache [None]
  - Dyspepsia [None]

NARRATIVE: CASE EVENT DATE: 20141102
